FAERS Safety Report 7673160-7 (Version None)
Quarter: 2011Q3

REPORT INFORMATION
  Report Type: 
  Country: None (occurrence: None)
  Receive Date: 20110810
  Receipt Date: 20110804
  Transmission Date: 20111222
  Serious: No
  Sender: FDA-Public Use
  Company Number: US-BIOGENIDEC-2011BI028460

PATIENT
  Age: 50 Year
  Sex: Female

DRUGS (1)
  1. TYSABRI [Suspect]
     Indication: MULTIPLE SCLEROSIS
     Route: 042
     Dates: start: 20090119

REACTIONS (5)
  - LIGAMENT RUPTURE [None]
  - FALL [None]
  - LOSS OF CONTROL OF LEGS [None]
  - MENTAL IMPAIRMENT [None]
  - LIGAMENT SPRAIN [None]
